FAERS Safety Report 4831134-5 (Version None)
Quarter: 2005Q4

REPORT INFORMATION
  Report Type: 
  Country: None (occurrence: None)
  Receive Date: 20051118
  Receipt Date: 20051108
  Transmission Date: 20060501
  Serious: Yes (Death, Hospitalization)
  Sender: FDA-Public Use
  Company Number: ES-AMGEN-UK157241

PATIENT
  Age: 57 Year
  Sex: Male

DRUGS (1)
  1. NEUPOGEN [Suspect]
     Indication: CHEMOTHERAPY
     Route: 058
     Dates: start: 20050813, end: 20050822

REACTIONS (4)
  - BLOOD LACTATE DEHYDROGENASE INCREASED [None]
  - CARDIOMEGALY [None]
  - NON-CARDIOGENIC PULMONARY OEDEMA [None]
  - PULMONARY MASS [None]
